FAERS Safety Report 24125580 (Version 1)
Quarter: 2024Q3

REPORT INFORMATION
  Report Type: Spontaneous
  Country: US (occurrence: US)
  Receive Date: 20240723
  Receipt Date: 20240723
  Transmission Date: 20241017
  Serious: Yes (Hospitalization)
  Sender: NOVARTIS
  Company Number: US-002147023-NVSC2024US148281

PATIENT
  Age: 64 Year
  Sex: Female
  Weight: 78.912 kg

DRUGS (1)
  1. COSENTYX [Suspect]
     Active Substance: SECUKINUMAB
     Indication: Psoriatic arthropathy
     Dosage: 300 G, QD
     Route: 058
     Dates: start: 20240708

REACTIONS (1)
  - COVID-19 [Unknown]
